FAERS Safety Report 10857930 (Version 1)
Quarter: 2015Q1

REPORT INFORMATION
  Report Type: Spontaneous
  Country: US (occurrence: US)
  Receive Date: 20150223
  Receipt Date: 20150223
  Transmission Date: 20150721
  Serious: No
  Sender: FDA-Public Use
  Company Number: US-AMGEN-USASP2014012778

PATIENT
  Age: 66 Year
  Sex: Female

DRUGS (1)
  1. ENBREL [Suspect]
     Active Substance: ETANERCEPT
     Indication: RHEUMATOID ARTHRITIS
     Dosage: 50 MG, QWK
     Route: 065
     Dates: start: 20140125

REACTIONS (3)
  - Rash pruritic [Recovering/Resolving]
  - Rash erythematous [Recovering/Resolving]
  - Ocular discomfort [Not Recovered/Not Resolved]

NARRATIVE: CASE EVENT DATE: 201401
